FAERS Safety Report 9888102 (Version 1)
Quarter: 2014Q1

REPORT INFORMATION
  Report Type: Spontaneous
  Country: GB (occurrence: GB)
  Receive Date: 20140211
  Receipt Date: 20140211
  Transmission Date: 20141002
  Serious: Yes (Other)
  Sender: FDA-Public Use
  Company Number: GB-ACTAVIS-2014-02108

PATIENT
  Age: 7 Year
  Sex: Male

DRUGS (4)
  1. SALBUTAMOL (UNKNOWN) [Suspect]
     Indication: ASTHMA
     Dosage: 2 MCG/KG/MIN CONTINUOUS
     Route: 042
  2. SALBUTAMOL (UNKNOWN) [Suspect]
     Dosage: 15 MCG/KG BOLUS
     Route: 042
  3. AMINOPHYLLINE [Concomitant]
     Indication: ASTHMA
     Dosage: 1 MG/KG/H CONTINUOUS
     Route: 042
  4. AMINOPHYLLINE [Concomitant]
     Dosage: 5 MG/KG, SINGLE
     Route: 042

REACTIONS (2)
  - Lactic acidosis [Recovered/Resolved]
  - Blood glucose increased [Recovered/Resolved]
